FAERS Safety Report 7226763-8 (Version None)
Quarter: 2011Q1

REPORT INFORMATION
  Report Type: 
  Country: None (occurrence: None)
  Receive Date: 20110114
  Receipt Date: 20110111
  Transmission Date: 20110831
  Serious: Yes (Hospitalization)
  Sender: FDA-Public Use
  Company Number: US-GENZYME-CAMP-1001260

PATIENT
  Age: 65 Year
  Sex: Female

DRUGS (4)
  1. CAMPATH [Suspect]
     Dosage: 10 MG, ONCE
     Route: 058
     Dates: start: 20110105, end: 20110105
  2. LISINOPRIL [Concomitant]
     Indication: BLOOD PRESSURE ABNORMAL
  3. CAMPATH [Suspect]
     Indication: T-CELL PROLYMPHOCYTIC LEUKAEMIA
     Dosage: 3 MG, ONCE
     Route: 058
     Dates: start: 20110103, end: 20110103
  4. CAMPATH [Suspect]
     Dosage: 30 MG, ONCE
     Route: 058
     Dates: start: 20110107, end: 20110107

REACTIONS (2)
  - NAUSEA [None]
  - HYPONATRAEMIA [None]
